FAERS Safety Report 6733905-7 (Version None)
Quarter: 2010Q2

REPORT INFORMATION
  Report Type: 
  Country: None (occurrence: None)
  Receive Date: 20100520
  Receipt Date: 20100512
  Transmission Date: 20101027
  Serious: Yes (Other)
  Sender: FDA-Public Use
  Company Number: US-ROCHE-701017

PATIENT
  Sex: Male
  Weight: 62.6 kg

DRUGS (1)
  1. CAPECITABINE [Suspect]
     Dosage: DOSE: 2 TABLETS OF 500 MG TWICE DAILY
     Route: 048
     Dates: start: 20091106, end: 20100512

REACTIONS (2)
  - ABDOMINAL PAIN UPPER [None]
  - NO THERAPEUTIC RESPONSE [None]
